FAERS Safety Report 5414628-3 (Version None)
Quarter: 2007Q3

REPORT INFORMATION
  Report Type: 
  Country: None (occurrence: None)
  Receive Date: 20070731
  Receipt Date: 20070501
  Transmission Date: 20080115
  Serious: No
  Sender: FDA-Public Use
  Company Number: 2006PV023643

PATIENT
  Age: 65 Year
  Sex: Male
  Weight: 128.3 kg

DRUGS (5)
  1. EXENATIDE(EXENATIDE) PEN, DISPOSABLE [Suspect]
     Indication: TYPE 2 DIABETES MELLITUS
     Dosage: 10 UG; 2/D, SUBCUTANEOUS
     Route: 058
     Dates: start: 20060901, end: 20070428
  2. EXENATIDE(EXENATIDE) PEN, DISPOSABLE [Suspect]
     Indication: TYPE 2 DIABETES MELLITUS
     Dosage: 10 UG; 2/D, SUBCUTANEOUS
     Route: 058
     Dates: start: 20061009
  3. NOVOLIN R [Concomitant]
  4. NOVOLIN N [Concomitant]
  5. PRANDIN [Concomitant]

REACTIONS (3)
  - BLOOD GLUCOSE DECREASED [None]
  - BLOOD GLUCOSE INCREASED [None]
  - WEIGHT DECREASED [None]
